FAERS Safety Report 4960843-2 (Version None)
Quarter: 2006Q1

REPORT INFORMATION
  Report Type: 
  Country: None (occurrence: None)
  Receive Date: 20060329
  Receipt Date: 20060315
  Transmission Date: 20060701
  Serious: Yes (Death, Hospitalization)
  Sender: FDA-Public Use
  Company Number: 2006037838

PATIENT
  Age: 66 Year
  Sex: Male

DRUGS (4)
  1. PREDNISOLONE [Suspect]
     Indication: ILL-DEFINED DISORDER
  2. CYCLOPHOSPHAMIDE [Suspect]
     Indication: ILL-DEFINED DISORDER
  3. VINCRISTINE [Suspect]
     Indication: ILL-DEFINED DISORDER
  4. RITUXIMAB (RITUXIMAB) [Suspect]
     Indication: ILL-DEFINED DISORDER

REACTIONS (5)
  - CONDITION AGGRAVATED [None]
  - LIVER DISORDER [None]
  - LYMPHOCYTIC INFILTRATION [None]
  - PERIPHERAL T-CELL LYMPHOMA UNSPECIFIED RECURRENT [None]
  - THERAPY NON-RESPONDER [None]
